FAERS Safety Report 9188559 (Version 2)
Quarter: 2013Q2

REPORT INFORMATION
  Report Type: Report from Study
  Country: US (occurrence: US)
  Receive Date: 20130325
  Receipt Date: 20130405
  Transmission Date: 20140414
  Serious: Yes (Hospitalization)
  Sender: FDA-Public Use
  Company Number: US-ABBOTT-13P-163-1065379-00

PATIENT
  Age: 82 Year
  Sex: Female

DRUGS (9)
  1. HUMIRA [Suspect]
     Indication: CROHN^S DISEASE
     Dosage: INITIAL LOADING DOSE
     Dates: start: 20130225, end: 20130225
  2. AMIODARONE [Concomitant]
     Indication: ATRIAL FIBRILLATION
     Route: 048
  3. CENTRUM SILVER [Concomitant]
     Indication: VITAMIN SUPPLEMENTATION
  4. FUROSEMIDE [Concomitant]
     Indication: SWELLING
     Dosage: 20MG DAILY
     Route: 048
  5. FOLGARD [Concomitant]
     Indication: SUPPLEMENTATION THERAPY
     Dosage: DAILY
     Route: 048
  6. FEOSOL IRON SUPPLEMENT [Concomitant]
     Indication: ANAEMIA
     Dosage: DAILY
     Route: 048
  7. BABY ASPIRIN [Concomitant]
     Indication: CARDIAC DISORDER
     Dosage: 81MG DAILY
     Route: 048
  8. AZATHIOPRINE [Concomitant]
     Indication: CROHN^S DISEASE
     Dosage: 50MG DAILY
     Route: 048
  9. VITAMIN D [Concomitant]
     Indication: VITAMIN SUPPLEMENTATION
     Dosage: 2000 IU
     Route: 048

REACTIONS (4)
  - Thrombosis [Recovered/Resolved]
  - Dyspnoea [Recovered/Resolved]
  - Skin discolouration [Recovered/Resolved]
  - Oedema peripheral [Recovered/Resolved]
